FAERS Safety Report 8462587-1 (Version None)
Quarter: 2012Q2

REPORT INFORMATION
  Report Type: 
  Country: None (occurrence: None)
  Receive Date: 20120625
  Receipt Date: 20120504
  Transmission Date: 20120825
  Serious: No
  Sender: FDA-Public Use
  Company Number: US-BAUSCH-2012BL002007

PATIENT
  Age: 40 Year
  Sex: Female

DRUGS (11)
  1. BESIVANCE [Suspect]
     Indication: OFF LABEL USE
     Route: 047
     Dates: start: 20120119, end: 20120119
  2. ASASITE [Concomitant]
  3. BROMDAY [Concomitant]
     Indication: PHOTOREFRACTIVE KERATECTOMY
     Route: 047
     Dates: start: 20120119, end: 20120119
  4. RESTASIS [Concomitant]
  5. PRED FORTE [Concomitant]
     Indication: POSTOPERATIVE CARE
     Route: 047
     Dates: start: 20120119
  6. BESIVANCE [Suspect]
     Route: 047
     Dates: start: 20120119
  7. BESIVANCE [Suspect]
     Indication: POSTOPERATIVE CARE
     Route: 047
     Dates: start: 20120119, end: 20120119
  8. BESIVANCE [Suspect]
     Route: 047
     Dates: start: 20120119
  9. IBUPROFEN [Concomitant]
     Route: 048
  10. BROMFENAC [Concomitant]
     Indication: POSTOPERATIVE CARE
     Route: 047
     Dates: start: 20120119
  11. PRED FORTE [Concomitant]
     Indication: PHOTOREFRACTIVE KERATECTOMY
     Route: 047
     Dates: start: 20120119, end: 20120119

REACTIONS (3)
  - IMPAIRED HEALING [None]
  - CORNEAL DISORDER [None]
  - CORNEAL OPACITY [None]
